FAERS Safety Report 7127576-8 (Version None)
Quarter: 2010Q4

REPORT INFORMATION
  Report Type: 
  Country: None (occurrence: None)
  Receive Date: 20101129
  Receipt Date: 20101118
  Transmission Date: 20110411
  Serious: Yes (Other)
  Sender: FDA-Public Use
  Company Number: PHHY2010AU60827

PATIENT
  Sex: Female

DRUGS (3)
  1. ACLASTA [Suspect]
     Indication: OSTEOPOROSIS
     Dosage: 5MG/100 ML
     Dates: start: 20091021
  2. CARDIZEM [Concomitant]
     Dosage: 180 GM
     Route: 048
     Dates: start: 20070101
  3. LEVOTHYROXINE SODIUM [Concomitant]
     Dosage: 125 MG
     Route: 048
     Dates: start: 20070101

REACTIONS (2)
  - HEART RATE IRREGULAR [None]
  - PALPITATIONS [None]
